FAERS Safety Report 8975711 (Version 2)
Quarter: 2014Q2

REPORT INFORMATION
  Report Type: Report from Study
  Country: FR (occurrence: FR)
  Receive Date: 20121219
  Receipt Date: 20140627
  Transmission Date: 20141212
  Serious: Yes (Hospitalization)
  Sender: FDA-Public Use
  Company Number: PHHY2012FR116995

PATIENT
  Age: 80 Year
  Sex: Male
  Weight: 93 kg

DRUGS (4)
  1. AMN107 [Suspect]
     Indication: CHRONIC MYELOID LEUKAEMIA
     Dosage: 300 MG, BID
     Route: 048
     Dates: start: 20110315, end: 20121016
  2. STABLON [Concomitant]
     Indication: DEPRESSION
  3. INEXIUM//ESOMEPRAZOLE MAGNESIUM [Concomitant]
     Indication: GASTRIC ULCER
     Dosage: 40 MG, UNK
  4. LYSANXIA [Concomitant]
     Indication: DEPRESSION

REACTIONS (1)
  - Ischaemic stroke [Recovered/Resolved]
